FAERS Safety Report 6640190-3 (Version None)
Quarter: 2010Q1

REPORT INFORMATION
  Report Type: 
  Country: None (occurrence: None)
  Receive Date: 20100318
  Receipt Date: 20100311
  Transmission Date: 20100710
  Serious: Yes (Other)
  Sender: FDA-Public Use
  Company Number: GB-AMGEN-QUU392180

PATIENT
  Sex: Male

DRUGS (2)
  1. ARANESP [Suspect]
     Indication: DRUG USE FOR UNKNOWN INDICATION
  2. ALLOPURINOL [Concomitant]

REACTIONS (1)
  - NO THERAPEUTIC RESPONSE [None]
